FAERS Safety Report 15193076 (Version 1)
Quarter: 2018Q3

REPORT INFORMATION
  Report Type: Spontaneous
  Country: US (occurrence: US)
  Receive Date: 20180725
  Receipt Date: 20180725
  Transmission Date: 20181010
  Serious: No
  Sender: FDA-Public Use
  Company Number: US-TEVA-798249ACC

PATIENT
  Sex: Male

DRUGS (2)
  1. ATENOLOL AND CHLORTALIDONE [Suspect]
     Active Substance: ATENOLOL\CHLORTHALIDONE
     Indication: HYPERTENSION
     Dosage: DOSE STRENGTH:  50/25
     Dates: start: 2007
  2. SPIRONOLACTONE. [Suspect]
     Active Substance: SPIRONOLACTONE
     Route: 065

REACTIONS (6)
  - Gynaecomastia [Unknown]
  - Dyspnoea [Recovered/Resolved]
  - Weight increased [Unknown]
  - Asthma [Unknown]
  - Erectile dysfunction [Unknown]
  - Joint swelling [Recovered/Resolved]
